FAERS Safety Report 7637328-8 (Version None)
Quarter: 2011Q3

REPORT INFORMATION
  Report Type: 
  Country: None (occurrence: None)
  Receive Date: 20110726
  Receipt Date: 20110721
  Transmission Date: 20111222
  Serious: Yes (Hospitalization)
  Sender: FDA-Public Use
  Company Number: CA-PFIZER INC-2011166717

PATIENT
  Age: 59 Year
  Sex: Male
  Weight: 84.5 kg

DRUGS (1)
  1. EPLERENONE [Suspect]
     Dosage: UNK

REACTIONS (3)
  - CONDITION AGGRAVATED [None]
  - CARDIAC FAILURE [None]
  - ATRIAL FIBRILLATION [None]
